FAERS Safety Report 7419931-3 (Version None)
Quarter: 2011Q2

REPORT INFORMATION
  Report Type: 
  Country: None (occurrence: None)
  Receive Date: 20110418
  Receipt Date: 20110411
  Transmission Date: 20111010
  Serious: Yes (Hospitalization, Other)
  Sender: FDA-Public Use
  Company Number: US-BIOGENIDEC-2011BI007962

PATIENT
  Age: 66 Year
  Sex: Male

DRUGS (1)
  1. TYSABRI [Suspect]
     Indication: MULTIPLE SCLEROSIS
     Route: 042
     Dates: start: 20100920

REACTIONS (7)
  - RIB FRACTURE [None]
  - ROAD TRAFFIC ACCIDENT [None]
  - UROSEPSIS [None]
  - RENAL FAILURE ACUTE [None]
  - RENAL FAILURE [None]
  - PYREXIA [None]
  - OEDEMA PERIPHERAL [None]
